FAERS Safety Report 6079487-7 (Version None)
Quarter: 2009Q1

REPORT INFORMATION
  Report Type: 
  Country: None (occurrence: None)
  Receive Date: 20090216
  Receipt Date: 20090206
  Transmission Date: 20090719
  Serious: Yes (Death, Hospitalization)
  Sender: FDA-Public Use
  Company Number: BE-AMGEN-US332916

PATIENT
  Age: 77 Year
  Sex: Female
  Weight: 56 kg

DRUGS (12)
  1. ENBREL [Suspect]
     Indication: RHEUMATOID ARTHRITIS
     Route: 058
     Dates: start: 20071210, end: 20081226
  2. ALLOPURINOL [Suspect]
     Indication: GOUT
     Route: 048
  3. LEDERTREXATE [Suspect]
     Indication: RHEUMATOID ARTHRITIS
     Route: 048
     Dates: start: 20070918, end: 20081226
  4. CIPRALEX [Concomitant]
     Indication: DEPRESSION
     Route: 065
  5. SELOZOK [Concomitant]
     Indication: HYPERTENSION
     Route: 048
  6. ACCURETIC [Concomitant]
     Indication: HYPERTENSION
     Dosage: 10/12,5 MG  1 TABLET PER DAY
     Route: 048
  7. LIPITOR [Concomitant]
     Indication: HYPERLIPIDAEMIA
     Route: 048
  8. ACTONEL [Concomitant]
     Indication: OSTEOPOROSIS
     Route: 048
  9. LORMETAZEPAM [Concomitant]
     Indication: INSOMNIA
     Route: 048
  10. OMEPRAZOLE [Concomitant]
     Indication: OESOPHAGITIS
     Route: 048
  11. ASPIRIN [Concomitant]
     Indication: THROMBOSIS PROPHYLAXIS
     Route: 048
  12. CALCIUM CARBONATE/COLECALCIFEROL [Concomitant]
     Route: 065

REACTIONS (3)
  - LEUKOPENIA [None]
  - PNEUMONIA [None]
  - THROMBOCYTOPENIA [None]
